FAERS Safety Report 8151201-0 (Version None)
Quarter: 2012Q1

REPORT INFORMATION
  Report Type: 
  Country: None (occurrence: None)
  Receive Date: 20120220
  Receipt Date: 20120210
  Transmission Date: 20120608
  Serious: Yes (Hospitalization)
  Sender: FDA-Public Use
  Company Number: BR-ASTRAZENECA-2012SE09891

PATIENT
  Age: 69 Year
  Sex: Male
  Weight: 105 kg

DRUGS (7)
  1. JANUMET [Concomitant]
     Indication: DIABETES MELLITUS
     Dosage: 50/1000 MG
     Route: 048
     Dates: start: 20120209
  2. EXODUS [Concomitant]
     Route: 048
  3. PLAVIX [Concomitant]
     Indication: ARTERIAL OCCLUSIVE DISEASE
     Route: 048
     Dates: start: 19960101
  4. UNKNOWN MEDICATION [Concomitant]
     Indication: ARTERIAL OCCLUSIVE DISEASE
     Route: 048
     Dates: start: 19960101
  5. METFORMIN HYDROCHLORIDE [Concomitant]
     Indication: DIABETES MELLITUS
     Route: 048
  6. ATACAND [Suspect]
     Indication: HYPERTENSION
     Route: 048
     Dates: start: 20120209
  7. CRESTOR [Suspect]
     Route: 048
     Dates: start: 20120209

REACTIONS (4)
  - SPINAL DISORDER [None]
  - CHEST PAIN [None]
  - THROAT TIGHTNESS [None]
  - ANAEMIA [None]
